FAERS Safety Report 4597775-8 (Version None)
Quarter: 2005Q1

REPORT INFORMATION
  Report Type: 
  Country: None (occurrence: None)
  Receive Date: 20050303
  Receipt Date: 20041108
  Transmission Date: 20050727
  Serious: Yes (Hospitalization, Other)
  Sender: FDA-Public Use
  Company Number: US-MERCK-0411USA01406

PATIENT
  Age: 70 Year
  Sex: Male

DRUGS (1)
  1. VIOXX [Suspect]
     Indication: ARTHRITIS
     Route: 048
     Dates: start: 20020422

REACTIONS (9)
  - BENIGN PROSTATIC HYPERPLASIA [None]
  - BLOOD CHOLESTEROL INCREASED [None]
  - CEREBROVASCULAR ACCIDENT [None]
  - HEPATIC CYST [None]
  - HYPERTENSION [None]
  - PULMONARY GRANULOMA [None]
  - TRANSIENT ISCHAEMIC ATTACK [None]
  - URETERIC STENOSIS [None]
  - URINARY RETENTION [None]
